FAERS Safety Report 4356759-5 (Version None)
Quarter: 2004Q2

REPORT INFORMATION
  Report Type: 
  Country: None (occurrence: None)
  Receive Date: 20040507
  Receipt Date: 20040421
  Transmission Date: 20050107
  Serious: Yes (Hospitalization, Other)
  Sender: FDA-Public Use
  Company Number: JP_040402960

PATIENT
  Age: 58 Year
  Sex: Male
  Weight: 73 kg

DRUGS (8)
  1. GEMZAR [Suspect]
     Indication: NON-SMALL CELL LUNG CANCER RECURRENT
     Dosage: 1350 MG; OTHER
     Route: 042
     Dates: start: 20031202, end: 20030114
  2. DOCETAXEL [Concomitant]
  3. HARNAL (TAMSULOSIN HYDROCHLORIDE) [Concomitant]
  4. ACTOS (PIOGLITAZONE) [Concomitant]
  5. AMARYL [Concomitant]
  6. MAGNESIUM OXIDE [Concomitant]
  7. CODEINE  PHOSPHATE [Concomitant]
  8. MEDICON (DEXTROMETHORPHAN HYDROBROMIDE) [Concomitant]

REACTIONS (8)
  - INFECTION [None]
  - INFLUENZA [None]
  - INTERSTITIAL LUNG DISEASE [None]
  - NASOPHARYNGITIS [None]
  - NEUTROPHIL COUNT DECREASED [None]
  - PYREXIA [None]
  - TUMOUR ASSOCIATED FEVER [None]
  - WHITE BLOOD CELL COUNT DECREASED [None]
